FAERS Safety Report 9156758 (Version 1)
Quarter: 2013Q1

REPORT INFORMATION
  Report Type: Spontaneous
  Country: US (occurrence: None)
  Receive Date: 20130211
  Receipt Date: 20130211
  Transmission Date: 20140127
  Serious: Yes (Hospitalization)
  Sender: FDA-Public Use
  Company Number: 145057

PATIENT
  Age: 71 Year
  Sex: Female
  Weight: 62 kg

DRUGS (1)
  1. LEUCOVORIN CALCIUM FOR INJ. 50MG-BEDFORD LABS, INC. [Suspect]
     Indication: COLORECTAL CANCER METASTATIC
     Dosage: DAY 1 EVERY 14 DAYS
     Route: 042
     Dates: start: 20121218

REACTIONS (10)
  - Tumour lysis syndrome [None]
  - Mental status changes [None]
  - Abdominal pain [None]
  - Condition aggravated [None]
  - Constipation [None]
  - Vomiting [None]
  - Tremor [None]
  - Tremor [None]
  - Gait disturbance [None]
  - Platelet count decreased [None]
